FAERS Safety Report 11614103 (Version 3)
Quarter: 2015Q4

REPORT INFORMATION
  Report Type: Report from Study
  Country: DE (occurrence: DE)
  Receive Date: 20151008
  Receipt Date: 20151029
  Transmission Date: 20160304
  Serious: Yes (Hospitalization)
  Sender: FDA-Public Use
  Company Number: DE-B.I. PHARMACEUTICALS,INC./RIDGEFIELD-2013-BI-06532II

PATIENT
  Age: 68 Year
  Sex: Male
  Weight: 79 kg

DRUGS (10)
  1. BIBW 2992 [Suspect]
     Active Substance: AFATINIB
     Indication: BILE DUCT ADENOCARCINOMA
     Dosage: 30 MG
     Route: 048
     Dates: start: 20121204, end: 20130103
  2. MORPHINE SULFATE/NALTREXONE HYDROCHLORIDE [Concomitant]
     Active Substance: MORPHINE SULFATE\NALTREXONE HYDROCHLORIDE
     Indication: ABDOMINAL PAIN
     Dosage: DAILY DOSE: 20MG PRN
     Route: 048
     Dates: start: 20121211
  3. NOVALGIN [Concomitant]
     Active Substance: METAMIZOLE SODIUM
     Indication: ABDOMINAL PAIN
     Dosage: DOSE PER APP/DAILY DOSE: 160 DROPS PRN
     Route: 048
     Dates: start: 20121211
  4. REMERGIL [Concomitant]
     Active Substance: MIRTAZAPINE
     Indication: DEPRESSION
     Dosage: 30 MG
     Route: 048
     Dates: start: 2010
  5. VALORON [Concomitant]
     Active Substance: TILIDINE HYDROCHLORIDE
     Indication: ABDOMINAL PAIN
     Dosage: 10 MG
     Route: 048
     Dates: start: 20121022
  6. VALORON [Concomitant]
     Active Substance: TILIDINE HYDROCHLORIDE
     Dosage: DOSE PER APP/DAILY DOSE: 30 DROPS PRN
     Route: 048
     Dates: start: 20121022
  7. BEROTEC [Concomitant]
     Active Substance: FENOTEROL HYDROBROMIDE
     Indication: DYSPNOEA
     Dosage: 4 PUF
     Route: 055
     Dates: start: 20121204
  8. GEMCITABINE [Suspect]
     Active Substance: GEMCITABINE\GEMCITABINE HYDROCHLORIDE
     Indication: BILE DUCT ADENOCARCINOMA
     Dosage: DOSE PER APP/DAILY DOSE: 1000MG/M2
     Route: 042
     Dates: start: 20121204, end: 20130103
  9. CISPLATIN. [Suspect]
     Active Substance: CISPLATIN
     Indication: BILE DUCT ADENOCARCINOMA
     Dosage: DOSE PER APP/DAILY DOSE: 25MG/M2
     Route: 042
     Dates: start: 20121204, end: 20130103
  10. AMPHO-MORONAL [Concomitant]
     Active Substance: AMPHOTERICIN B
     Indication: STOMATITIS
     Dosage: 40 MG
     Route: 048
     Dates: start: 20121211

REACTIONS (6)
  - Thrombocytopenia [Recovered/Resolved]
  - Infection [Recovered/Resolved]
  - Hypokalaemia [Not Recovered/Not Resolved]
  - Cardiac failure [Recovered/Resolved]
  - Anaemia [Recovered/Resolved]
  - Pleural effusion [Recovered/Resolved with Sequelae]

NARRATIVE: CASE EVENT DATE: 20130110
